FAERS Safety Report 25600959 (Version 3)
Quarter: 2025Q3

REPORT INFORMATION
  Report Type: Spontaneous
  Country: US (occurrence: US)
  Receive Date: 20250724
  Receipt Date: 20250910
  Transmission Date: 20251021
  Serious: Yes (Hospitalization, Other)
  Sender: SANOFI AVENTIS
  Company Number: US-SA-2025SA212183

PATIENT
  Sex: Female

DRUGS (2)
  1. DUPIXENT [Suspect]
     Active Substance: DUPILUMAB
     Indication: Asthma
     Dosage: 200 MG, QOW
     Route: 058
  2. OFEV [Suspect]
     Active Substance: NINTEDANIB

REACTIONS (3)
  - Loss of consciousness [Unknown]
  - Hospitalisation [Unknown]
  - Diarrhoea [Not Recovered/Not Resolved]
